FAERS Safety Report 18672380 (Version 1)
Quarter: 2020Q4

REPORT INFORMATION
  Report Type: Spontaneous
  Country: GB (occurrence: GB)
  Receive Date: 20201228
  Receipt Date: 20201228
  Transmission Date: 20210114
  Serious: Yes (Other)
  Sender: FDA-Public Use
  Company Number: GB-JNJFOC-20201240813

PATIENT
  Age: 19 Year
  Sex: Female
  Weight: 46.26 kg

DRUGS (1)
  1. TOPAMAX [Suspect]
     Active Substance: TOPIRAMATE
     Indication: MIGRAINE PROPHYLAXIS
     Route: 048
     Dates: start: 20201024, end: 20201124

REACTIONS (2)
  - Hypoaesthesia [Recovered/Resolved]
  - Tension headache [Recovered/Resolved]
